FAERS Safety Report 25917601 (Version 1)
Quarter: 2025Q4

REPORT INFORMATION
  Report Type: Spontaneous
  Country: ID (occurrence: ID)
  Receive Date: 20251014
  Receipt Date: 20251014
  Transmission Date: 20260118
  Serious: Yes (Other)
  Sender: CELLTRION
  Company Number: ID-CELLTRION INC.-2025ID037109

PATIENT

DRUGS (5)
  1. RITUXIMAB [Suspect]
     Active Substance: RITUXIMAB
     Indication: Non-Hodgkin^s lymphoma
     Dosage: EVERY 3 WEEKS FOUR CYCLES
     Dates: end: 20250424
  2. CYCLOPHOSPHAMIDE [Suspect]
     Active Substance: CYCLOPHOSPHAMIDE
     Indication: Non-Hodgkin^s lymphoma
     Dosage: EVERY 3 WEEKS FOUR CYCLES
     Dates: end: 20250424
  3. DOXORUBICIN HYDROCHLORIDE [Suspect]
     Active Substance: DOXORUBICIN HYDROCHLORIDE
     Indication: Non-Hodgkin^s lymphoma
     Dosage: EVERY 3 WEEKS FOUR CYCLES
     Dates: end: 20250424
  4. VINCRISTINE SULFATE [Suspect]
     Active Substance: VINCRISTINE SULFATE
     Indication: Non-Hodgkin^s lymphoma
     Dosage: EVERY 3 WEEKS FOUR CYCLES
     Dates: end: 20250424
  5. PREDNISONE [Suspect]
     Active Substance: PREDNISONE
     Indication: Non-Hodgkin^s lymphoma
     Dosage: EVERY 3 WEEKS FOUR CYCLES
     Dates: end: 20250424

REACTIONS (2)
  - Behcet^s syndrome [Unknown]
  - Herpes simplex reactivation [Unknown]
